FAERS Safety Report 25722666 (Version 1)
Quarter: 2025Q3

REPORT INFORMATION
  Report Type: Spontaneous
  Country: US (occurrence: US)
  Receive Date: 20250825
  Receipt Date: 20250825
  Transmission Date: 20251020
  Serious: Yes (Life-Threatening, Hospitalization)
  Sender: MOLNLYCKE
  Company Number: US-Molnlycke-2183127

PATIENT
  Age: 52 Year
  Sex: Male

DRUGS (1)
  1. HIBICLENS [Suspect]
     Active Substance: CHLORHEXIDINE GLUCONATE
     Indication: Ear infection bacterial
     Dates: start: 20240901, end: 20240901

REACTIONS (5)
  - Balance disorder [Not Recovered/Not Resolved]
  - Hypoacusis [Not Recovered/Not Resolved]
  - Product use in unapproved indication [Recovered/Resolved]
  - Incorrect route of product administration [Recovered/Resolved]
  - Vertigo [Not Recovered/Not Resolved]

NARRATIVE: CASE EVENT DATE: 20240901
